FAERS Safety Report 8893178 (Version 1)
Quarter: 2012Q4

REPORT INFORMATION
  Report Type: Spontaneous
  Country: US (occurrence: None)
  Receive Date: 20121101
  Receipt Date: 20121101
  Transmission Date: 20130627
  Serious: Yes (Death)
  Sender: FDA-Public Use
  Company Number: 2012P1061149

PATIENT
  Age: 81 Year
  Sex: Female
  Weight: 58.97 kg

DRUGS (4)
  1. MORPHINE [Suspect]
     Route: 042
     Dates: start: 20120415, end: 20120415
  2. ATIVAN [Suspect]
     Route: 042
  3. UNKNOWN CHEMOTHERAPY	 DRUG [Concomitant]
  4. UNSPECIFIED HIGH BLOOD UNKNOI PRESSURE MEDICATION [Concomitant]

REACTIONS (8)
  - Dyspnoea [None]
  - Shock [None]
  - Heart rate decreased [None]
  - Feeling abnormal [None]
  - Body temperature decreased [None]
  - Urine output decreased [None]
  - Myocardial infarction [None]
  - Overdose [None]
